FAERS Safety Report 18243866 (Version 10)
Quarter: 2022Q1

REPORT INFORMATION
  Report Type: Report from Study
  Country: CR (occurrence: CR)
  Receive Date: 20200908
  Receipt Date: 20220216
  Transmission Date: 20220423
  Serious: Yes (Other)
  Sender: FDA-Public Use
  Company Number: NVSC2020CR206249

PATIENT
  Age: 47 Year
  Sex: Female
  Weight: 75 kg

DRUGS (11)
  1. KISQALI [Suspect]
     Active Substance: RIBOCICLIB
     Indication: Breast cancer metastatic
     Dosage: 600 MG, QD
     Route: 048
     Dates: start: 20200214
  2. KISQALI [Suspect]
     Active Substance: RIBOCICLIB
     Indication: Breast cancer
     Dosage: 600 MG, QD
     Route: 048
     Dates: start: 20200501
  3. KISQALI [Suspect]
     Active Substance: RIBOCICLIB
     Dosage: 200 MG, QD, DAILY IN THE MORNING
     Route: 048
     Dates: start: 20200521
  4. KISQALI [Suspect]
     Active Substance: RIBOCICLIB
     Dosage: 200 MG
     Route: 065
     Dates: start: 20200525
  5. KISQALI [Suspect]
     Active Substance: RIBOCICLIB
     Dosage: 200 MG, QD (AT MIDDAY)
     Route: 065
  6. KISQALI [Suspect]
     Active Substance: RIBOCICLIB
     Dosage: 600 MG, QD
     Route: 048
  7. FULVESTRANT [Suspect]
     Active Substance: FULVESTRANT
     Indication: Breast cancer metastatic
     Dosage: UNK UNK, QMO (EVERY MONTH)
     Route: 048
     Dates: start: 20200521
  8. FULVESTRANT [Suspect]
     Active Substance: FULVESTRANT
     Indication: Furuncle
  9. HYDROXYZINE [Suspect]
     Active Substance: HYDROXYZINE HYDROCHLORIDE
     Indication: Anxiety
     Dosage: 25 MG, QD
     Route: 048
     Dates: start: 2015
  10. CLONAZEPAM [Suspect]
     Active Substance: CLONAZEPAM
     Indication: Anxiety
     Dosage: UNK
     Route: 048
     Dates: start: 2015
  11. VENLAFAXINE [Concomitant]
     Active Substance: VENLAFAXINE HYDROCHLORIDE
     Indication: Anxiety
     Dosage: 150 MG, QD
     Route: 048
     Dates: start: 2015

REACTIONS (34)
  - Infarction [Unknown]
  - Choking [Unknown]
  - Asphyxia [Unknown]
  - Stress [Unknown]
  - Gastrooesophageal reflux disease [Not Recovered/Not Resolved]
  - Condition aggravated [Not Recovered/Not Resolved]
  - Hepatic steatosis [Unknown]
  - Lung disorder [Unknown]
  - Cardiac disorder [Unknown]
  - Hyperchlorhydria [Unknown]
  - Amnesia [Unknown]
  - Dyspepsia [Recovering/Resolving]
  - Abdominal discomfort [Not Recovered/Not Resolved]
  - Oropharyngeal discomfort [Not Recovered/Not Resolved]
  - Eating disorder [Unknown]
  - Hiatus hernia [Unknown]
  - Skin exfoliation [Unknown]
  - Arthralgia [Unknown]
  - Discomfort [Unknown]
  - Varicose vein [Unknown]
  - Pain [Unknown]
  - Malaise [Not Recovered/Not Resolved]
  - Skin fissures [Unknown]
  - Skin haemorrhage [Unknown]
  - Thyroid disorder [Unknown]
  - Gait disturbance [Unknown]
  - Weight increased [Unknown]
  - Peripheral swelling [Unknown]
  - Dry skin [Not Recovered/Not Resolved]
  - Nasopharyngitis [Unknown]
  - Pruritus [Unknown]
  - Vomiting [Not Recovered/Not Resolved]
  - Diarrhoea [Not Recovered/Not Resolved]
  - Injection site mass [Unknown]

NARRATIVE: CASE EVENT DATE: 20200601
